FAERS Safety Report 16929549 (Version 1)
Quarter: 2019Q4

REPORT INFORMATION
  Report Type: Spontaneous
  Country: US (occurrence: US)
  Receive Date: 20191017
  Receipt Date: 20191017
  Transmission Date: 20200122
  Serious: Yes (Life-Threatening, Hospitalization, Other)
  Sender: FDA-Public Use
  Company Number: US-ACCORD-158140

PATIENT
  Age: 57 Year
  Sex: Male

DRUGS (3)
  1. PIPERACILLIN/TAZOBACTAM [Concomitant]
  2. VANCOMYCIN [Concomitant]
     Active Substance: VANCOMYCIN
  3. CISATRACURIUM/CISATRACURIUM BESILATE [Suspect]
     Active Substance: CISATRACURIUM BESYLATE
     Indication: PRODUCT USED FOR UNKNOWN INDICATION

REACTIONS (1)
  - Hyperthermia malignant [Recovered/Resolved]
